FAERS Safety Report 8612851 (Version 4)
Quarter: 2014Q2

REPORT INFORMATION
  Report Type: Report from Study
  Country: US (occurrence: US)
  Receive Date: 20120613
  Receipt Date: 20140404
  Transmission Date: 20141212
  Serious: Yes (Hospitalization, Other)
  Sender: FDA-Public Use
  Company Number: US-ALEXION-A201201138

PATIENT
  Sex: 0

DRUGS (26)
  1. SOLIRIS [Suspect]
     Indication: HAEMOLYTIC URAEMIC SYNDROME
     Dosage: 300 MG, UNK
     Route: 042
     Dates: start: 20120523
  2. SOLIRIS [Suspect]
     Dosage: 600 MG, Q2W
     Route: 042
     Dates: start: 20120523
  3. COZAAR [Concomitant]
     Dosage: 12.5 MG, BID
  4. RENVELA [Concomitant]
     Dosage: 1 PKG W/MEALS, 1 TSP PM W/FEEDINGS
  5. ENALAPRIL [Concomitant]
     Dosage: 7.5 MG, BID
     Route: 048
  6. AMLODIPINE [Concomitant]
     Dosage: 5 MG, BID
  7. AMLODIPINE [Concomitant]
     Dosage: 2.5 MG MWF
  8. COREG [Concomitant]
     Dosage: 3.125MG/2ML, BID
  9. PRILOSEC [Concomitant]
     Dosage: 10 MG QD (5ML)
     Route: 048
  10. FERROUS SULFATE [Concomitant]
     Dosage: 3 MLS (30 MG), QD
  11. LEVETIRACETAM [Concomitant]
     Dosage: 125 MG, QD
  12. FOLIC ACID [Concomitant]
     Dosage: 1 TAB QD (1MG/5ML)
  13. POLY-VI-SOL [Concomitant]
     Dosage: UNK, QD
  14. GENTAK [Concomitant]
     Dosage: TO EXIT SITE, QD
     Route: 061
  15. CLONIDINE [Concomitant]
     Dosage: 0.2MG/ML SUSP 0.5-1ML FOR SBP}140
  16. NIFEDIPINE [Concomitant]
     Dosage: (4MG/ML) 1 ML FOR SBP.115, PRN
  17. HYDRALAZINE HCL [Concomitant]
     Dosage: 3MG/1ML FOR SBP}125, PRN
  18. MIRALAX [Concomitant]
     Dosage: 1CAPFUL, QD PRN
  19. DIASTAT [Concomitant]
     Indication: CONVULSION
     Dosage: 4ML BY 2ML FOR SEIZURE LASTING.3 MIN, PRN
     Route: 054
  20. EMLA [Concomitant]
     Dosage: 45 GM TUBE (APPLY TO INFUSAPORT SITE 2 HRS PRIOR TO USE)
     Route: 061
  21. KAYEXALATE [Concomitant]
     Dosage: 9 MG ON NON-DIALYSIS DAYS, PRN
  22. BENADRYL [Concomitant]
     Dosage: 12.5 MG, Q 4 HRS PRN
  23. ZOFRAN [Concomitant]
     Dosage: 2 MG, Q 4 HRS PRN
  24. ZEMPLAR [Concomitant]
     Dosage: 2 MCG, MWF
  25. EPOGEN [Concomitant]
     Dosage: 3200 UNITS MWF
  26. AMOXICILLIN [Concomitant]
     Indication: PROPHYLAXIS

REACTIONS (3)
  - Bacillus infection [Recovered/Resolved]
  - Device related infection [Recovered/Resolved]
  - Renal transplant [Not Recovered/Not Resolved]
